FAERS Safety Report 17425317 (Version 1)
Quarter: 2020Q1

REPORT INFORMATION
  Report Type: Spontaneous
  Country: GB (occurrence: GB)
  Receive Date: 20200218
  Receipt Date: 20200218
  Transmission Date: 20200409
  Serious: Yes (Other)
  Sender: FDA-Public Use
  Company Number: GB-AUROBINDO-AUR-APL-2020-007615

PATIENT
  Age: 41 Year
  Sex: Female
  Weight: 65 kg

DRUGS (2)
  1. METRONIDAZOLE. [Suspect]
     Active Substance: METRONIDAZOLE
     Indication: CELLULITIS
     Dosage: 400 MILLIGRAM
     Route: 048
     Dates: start: 20200113, end: 20200120
  2. FLUCLOXACILLIN SODIUM [Concomitant]
     Active Substance: FLUCLOXACILLIN SODIUM
     Indication: PRODUCT USED FOR UNKNOWN INDICATION
     Dosage: UNK
     Route: 065

REACTIONS (3)
  - Amnesia [Recovered/Resolved]
  - Confusional state [Recovered/Resolved]
  - Hallucination [Recovered/Resolved]
